FAERS Safety Report 6074534-0 (Version None)
Quarter: 2009Q1

REPORT INFORMATION
  Report Type: 
  Country: None (occurrence: None)
  Receive Date: 20090206
  Receipt Date: 20090123
  Transmission Date: 20090719
  Serious: No
  Sender: FDA-Public Use
  Company Number: 20085920

PATIENT
  Sex: Male

DRUGS (1)
  1. LIORESAL [Suspect]
     Indication: MUSCLE SPASTICITY
     Dosage: MCG, DAILY, INTRATHECAL
     Route: 037

REACTIONS (5)
  - CATHETER SITE PAIN [None]
  - GENERAL PHYSICAL HEALTH DETERIORATION [None]
  - LOCAL SWELLING [None]
  - MEDICAL DEVICE PAIN [None]
  - MUSCLE SPASMS [None]
